FAERS Safety Report 5815703-1 (Version None)
Quarter: 2008Q3

REPORT INFORMATION
  Report Type: 
  Country: None (occurrence: None)
  Receive Date: 20080721
  Receipt Date: 20080714
  Transmission Date: 20090109
  Serious: Yes (Hospitalization)
  Sender: FDA-Public Use
  Company Number: BR-BAYER-200815667LA

PATIENT
  Age: 32 Year
  Sex: Male

DRUGS (2)
  1. BETAFERON [Suspect]
     Indication: MULTIPLE SCLEROSIS
     Dosage: UNIT DOSE: 1 ML
     Route: 058
     Dates: start: 20040101, end: 20050101
  2. BETAFERON [Suspect]
     Dosage: UNIT DOSE: 1 ML
     Route: 058
     Dates: start: 20050801

REACTIONS (4)
  - BALANCE DISORDER [None]
  - HYPOAESTHESIA [None]
  - MULTIPLE SCLEROSIS RELAPSE [None]
  - SENSORY LOSS [None]
